FAERS Safety Report 9027877 (Version 1)
Quarter: 2013Q1

REPORT INFORMATION
  Report Type: Spontaneous
  Country: US (occurrence: None)
  Receive Date: 20130115
  Receipt Date: 20130115
  Transmission Date: 20140127
  Serious: Yes (Other)
  Sender: FDA-Public Use
  Company Number: None

PATIENT
  Age: 56 Year
  Sex: Female
  Weight: 104.33 kg

DRUGS (1)
  1. PREVACID SOLUTAB [Suspect]
     Dosage: ONE PRN PO
     Route: 048
     Dates: start: 20120801, end: 20130112

REACTIONS (3)
  - Nausea [None]
  - Vomiting [None]
  - Drug ineffective [None]
